FAERS Safety Report 19777137 (Version 1)
Quarter: 2021Q3

REPORT INFORMATION
  Report Type: Spontaneous
  Country: US (occurrence: US)
  Receive Date: 20210902
  Receipt Date: 20210902
  Transmission Date: 20211014
  Serious: No
  Sender: FDA-Public Use
  Company Number: US-SA-2021SA288052

PATIENT
  Age: 14 Year
  Sex: Male
  Weight: 39.2 kg

DRUGS (1)
  1. DUPIXENT [Suspect]
     Active Substance: DUPILUMAB
     Indication: DERMATITIS ATOPIC
     Dosage: 200 MG, QOW
     Route: 058
     Dates: start: 20210302

REACTIONS (3)
  - Drug effect less than expected [Unknown]
  - Skin hyperpigmentation [Unknown]
  - Skin hypopigmentation [Unknown]

NARRATIVE: CASE EVENT DATE: 2021
